FAERS Safety Report 17911241 (Version 1)
Quarter: 2020Q2

REPORT INFORMATION
  Report Type: Spontaneous
  Country: US (occurrence: US)
  Receive Date: 20200617
  Receipt Date: 20200617
  Transmission Date: 20200714
  Serious: No
  Sender: FDA-Public Use
  Company Number: None

PATIENT
  Age: 39 Year
  Sex: Female

DRUGS (5)
  1. OCTREOTIDE ACE INJ 1000MCG/ML 5ML [Suspect]
     Active Substance: OCTREOTIDE ACETATE
     Indication: COMPLICATION ASSOCIATED WITH DEVICE
     Dosage: ?          OTHER STRENGTH:1000MCG/ML 5ML;?
     Route: 058
     Dates: start: 201904
  2. OCTREOTIDE ACE INJ 1000MCG/ML 5ML [Suspect]
     Active Substance: OCTREOTIDE ACETATE
     Indication: HEADACHE
     Dosage: ?          OTHER STRENGTH:1000MCG/ML 5ML;?
     Route: 058
     Dates: start: 201904
  3. OCTREOTIDE ACE INJ 1000MCG/ML 5ML [Suspect]
     Active Substance: OCTREOTIDE ACETATE
     Indication: INTRACRANIAL PRESSURE INCREASED
     Dosage: ?          OTHER STRENGTH:1000MCG/ML 5ML;?
     Route: 058
     Dates: start: 201904
  4. OCTREOTIDE ACE INJ 1000MCG/ML 5ML [Suspect]
     Active Substance: OCTREOTIDE ACETATE
     Indication: PAPILLOEDEMA
     Dosage: ?          OTHER STRENGTH:1000MCG/ML 5ML;?
     Route: 058
     Dates: start: 201904
  5. OCTREOTIDE ACE INJ 1000MCG/ML 5ML [Suspect]
     Active Substance: OCTREOTIDE ACETATE
     Indication: HYDROCEPHALUS
     Dosage: ?          OTHER STRENGTH:1000MCG/ML 5ML;?
     Route: 058
     Dates: start: 201904

REACTIONS (3)
  - Complication associated with device [None]
  - Product availability issue [None]
  - Brain oedema [None]

NARRATIVE: CASE EVENT DATE: 20200617
